FAERS Safety Report 7271767-2 (Version None)
Quarter: 2011Q1

REPORT INFORMATION
  Report Type: 
  Country: None (occurrence: None)
  Receive Date: 20110131
  Receipt Date: 20110131
  Transmission Date: 20110831
  Serious: Yes (Hospitalization)
  Sender: FDA-Public Use
  Company Number: None

PATIENT
  Sex: Female
  Weight: 71.9 kg

DRUGS (6)
  1. BEVACIZUMAB (RHUMAB VEGF) [Suspect]
     Dosage: 374 MG
     Dates: end: 20110103
  2. LEUCOVORIN CALCIUM [Suspect]
     Dosage: 720 MG
     Dates: end: 20110131
  3. FLUOROURACIL [Suspect]
     Dosage: 575 MG
     Dates: end: 20110103
  4. AMLODIPINE [Concomitant]
  5. COUMADIN [Concomitant]
  6. LISINOPRIL [Concomitant]

REACTIONS (3)
  - NEUROTOXICITY [None]
  - ACUTE SINUSITIS [None]
  - EYELID PTOSIS [None]
